FAERS Safety Report 20291482 (Version 4)
Quarter: 2022Q1

REPORT INFORMATION
  Report Type: Spontaneous
  Country: US (occurrence: US)
  Receive Date: 20220104
  Receipt Date: 20220211
  Transmission Date: 20220423
  Serious: Yes (Other)
  Sender: FDA-Public Use
  Company Number: US-PFIZER INC-202101850911

PATIENT
  Age: 63 Year
  Sex: Female

DRUGS (1)
  1. INLYTA [Suspect]
     Active Substance: AXITINIB
     Dosage: 5 MG
     Dates: start: 20211210

REACTIONS (13)
  - Blood pressure increased [Not Recovered/Not Resolved]
  - Fatigue [Unknown]
  - Dysphonia [Unknown]
  - Nausea [Unknown]
  - Lymph node pain [Unknown]
  - Lymphadenopathy [Unknown]
  - Abdominal pain upper [Unknown]
  - Stomatitis [Unknown]
  - Oral pain [Unknown]
  - Dry skin [Unknown]
  - Constipation [Unknown]
  - Pain in extremity [Unknown]
  - Product dose omission issue [Unknown]
